FAERS Safety Report 24341229 (Version 5)
Quarter: 2025Q3

REPORT INFORMATION
  Report Type: Report from Study
  Country: US (occurrence: US)
  Receive Date: 20240919
  Receipt Date: 20250929
  Transmission Date: 20251021
  Serious: Yes (Other)
  Sender: SUNOVION
  Company Number: US-SUMITOMO PHARMA SWITZERLAND GMBH-2024SPA000556

PATIENT
  Age: 70 Year
  Sex: Male

DRUGS (3)
  1. ORGOVYX [Suspect]
     Active Substance: RELUGOLIX
     Indication: Prostate cancer
     Route: 048
  2. ORGOVYX [Suspect]
     Active Substance: RELUGOLIX
     Route: 048
     Dates: start: 20240524, end: 20240524
  3. ORGOVYX [Suspect]
     Active Substance: RELUGOLIX
     Dosage: 120 MG, QD
     Route: 048
     Dates: start: 20240525

REACTIONS (9)
  - Metastases to central nervous system [Unknown]
  - Emotional disorder [Unknown]
  - Memory impairment [Not Recovered/Not Resolved]
  - Prostatic specific antigen increased [Unknown]
  - Apathy [Unknown]
  - Hot flush [Unknown]
  - Back pain [Unknown]
  - Therapeutic product effect decreased [Unknown]
  - Product dose omission issue [Recovered/Resolved]
